FAERS Safety Report 5468393-4 (Version None)
Quarter: 2007Q3

REPORT INFORMATION
  Report Type: 
  Country: None (occurrence: None)
  Receive Date: 20070926
  Receipt Date: 20070918
  Transmission Date: 20080115
  Serious: Yes (Hospitalization)
  Sender: FDA-Public Use
  Company Number: JP-ROCHE-518554

PATIENT
  Age: 66 Year
  Sex: Male

DRUGS (6)
  1. TICLOPIDINE HCL [Suspect]
     Indication: ACUTE MYOCARDIAL INFARCTION
     Route: 048
     Dates: start: 20070625, end: 20070818
  2. PLAVIX [Suspect]
     Indication: ACUTE MYOCARDIAL INFARCTION
     Route: 048
     Dates: start: 20070821
  3. ASPIRIN [Concomitant]
     Indication: ACUTE MYOCARDIAL INFARCTION
     Route: 048
     Dates: start: 20070625
  4. ARTIST [Concomitant]
     Indication: ACUTE MYOCARDIAL INFARCTION
     Route: 048
     Dates: start: 20070625
  5. TANATRIL [Concomitant]
     Indication: ACUTE MYOCARDIAL INFARCTION
     Route: 048
     Dates: start: 20070625
  6. LIPITOR [Concomitant]
     Indication: ACUTE MYOCARDIAL INFARCTION
     Route: 048
     Dates: start: 20070625, end: 20070825

REACTIONS (5)
  - CHOLESTASIS [None]
  - DYSPNOEA [None]
  - HYPERHIDROSIS [None]
  - LIVER DISORDER [None]
  - MALAISE [None]
